FAERS Safety Report 8245921-7 (Version None)
Quarter: 2012Q1

REPORT INFORMATION
  Report Type: 
  Country: None (occurrence: None)
  Receive Date: 20120328
  Receipt Date: 20120328
  Transmission Date: 20120608
  Serious: Yes (Hospitalization)
  Sender: FDA-Public Use
  Company Number: None

PATIENT
  Sex: Male
  Weight: 17.4 kg

DRUGS (5)
  1. DACTINOMYCIN [Suspect]
     Dosage: .52 MG
  2. VINCRISTINE SULFATE [Suspect]
     Dosage: 2.5 MG
  3. DOXORUBICIN HCL [Suspect]
     Dosage: 32 MG
  4. CYCLOPHOSPHAMIDE [Suspect]
     Dosage: 1560 MG
  5. ETOPOSIDE [Suspect]
     Dosage: 355 MG

REACTIONS (7)
  - NEPHROTIC SYNDROME [None]
  - RENAL FAILURE [None]
  - NEUTROPENIA [None]
  - PYREXIA [None]
  - PERICARDIAL EFFUSION [None]
  - GENERALISED OEDEMA [None]
  - CHEST PAIN [None]
